FAERS Safety Report 6174215-9 (Version None)
Quarter: 2009Q2

REPORT INFORMATION
  Report Type: 
  Country: None (occurrence: None)
  Receive Date: 20090430
  Receipt Date: 20080324
  Transmission Date: 20091009
  Serious: No
  Sender: FDA-Public Use
  Company Number: US-ASTRAZENECA-2008UW05913

PATIENT
  Age: 49 Year
  Sex: Female
  Weight: 85.7 kg

DRUGS (6)
  1. NEXIUM [Suspect]
     Indication: HIATUS HERNIA
     Route: 048
     Dates: start: 20050101
  2. VYTORIN [Concomitant]
  3. HYZAAR [Concomitant]
  4. MULTI-VITAMINS [Concomitant]
  5. CALCIUM [Concomitant]
  6. ASPIRIN [Concomitant]

REACTIONS (2)
  - ALOPECIA [None]
  - FORMICATION [None]
